FAERS Safety Report 7425240-9 (Version None)
Quarter: 2011Q2

REPORT INFORMATION
  Report Type: 
  Country: None (occurrence: None)
  Receive Date: 20110420
  Receipt Date: 20110415
  Transmission Date: 20111010
  Serious: Yes (Death, Hospitalization, Other)
  Sender: FDA-Public Use
  Company Number: TW-ABBOTT-11P-153-0719157-00

PATIENT
  Sex: Male

DRUGS (2)
  1. MTX [Concomitant]
     Indication: RHEUMATOID ARTHRITIS
     Dates: end: 20110308
  2. HUMIRA [Suspect]
     Indication: RHEUMATOID ARTHRITIS
     Dates: start: 20100122, end: 20110308

REACTIONS (3)
  - ACUTE HEPATIC FAILURE [None]
  - HEPATITIS FULMINANT [None]
  - HEPATITIS [None]
